FAERS Safety Report 7385928-5 (Version None)
Quarter: 2011Q1

REPORT INFORMATION
  Report Type: 
  Country: None (occurrence: None)
  Receive Date: 20110331
  Receipt Date: 20110329
  Transmission Date: 20110831
  Serious: Yes (Other)
  Sender: FDA-Public Use
  Company Number: US-AMGEN-USASP2011012748

PATIENT
  Age: 62 Year
  Sex: Male
  Weight: 213.4 kg

DRUGS (1)
  1. NPLATE [Suspect]
     Indication: IDIOPATHIC THROMBOCYTOPENIC PURPURA
     Dosage: 1 A?G/KG, QWK
     Dates: start: 20100903

REACTIONS (7)
  - ARTHRALGIA [None]
  - FATIGUE [None]
  - ANAEMIA [None]
  - SCIATICA [None]
  - DYSPEPSIA [None]
  - GALLBLADDER POLYP [None]
  - CHOLECYSTITIS CHRONIC [None]
